FAERS Safety Report 10213906 (Version 1)
Quarter: 2014Q2

REPORT INFORMATION
  Report Type: Spontaneous
  Country: US (occurrence: US)
  Receive Date: 20140603
  Receipt Date: 20140603
  Transmission Date: 20141212
  Serious: Yes (Other)
  Sender: FDA-Public Use
  Company Number: US-SA-2014SA068704

PATIENT
  Sex: Male

DRUGS (3)
  1. LANTUS SOLOSTAR [Suspect]
     Indication: PRODUCT USED FOR UNKNOWN INDICATION
     Dosage: PRODUCT START DATE REPORTED AS 2-3 MONTHS,
     Route: 058
     Dates: start: 2014
  2. LANTUS SOLOSTAR [Suspect]
     Indication: PRODUCT USED FOR UNKNOWN INDICATION
     Dosage: REPORTED AS DOSE INCREASED TO 40-50 UNITS
     Route: 058
     Dates: start: 2014
  3. SOLOSTAR [Concomitant]
     Dates: start: 2014

REACTIONS (2)
  - Dementia [Unknown]
  - Blood glucose increased [Unknown]
